FAERS Safety Report 4621943-X (Version None)
Quarter: 2005Q1

REPORT INFORMATION
  Report Type: 
  Country: None (occurrence: None)
  Receive Date: 20050329
  Receipt Date: 20050315
  Transmission Date: 20050727
  Serious: Yes (Other)
  Sender: FDA-Public Use
  Company Number: PHEH2005US03160

PATIENT
  Age: 60 Year
  Sex: Male

DRUGS (5)
  1. ELIDEL [Suspect]
     Indication: ECZEMA
     Dosage: UNK, PRN
     Route: 061
     Dates: start: 20030507, end: 20050301
  2. ATENOLOL [Concomitant]
  3. ENALAPRIL [Concomitant]
  4. TAZORAC [Concomitant]
     Dates: start: 20040901
  5. LAC-HYDRIN [Concomitant]
     Dates: start: 20040201

REACTIONS (2)
  - MYELODYSPLASTIC SYNDROME [None]
  - WHITE BLOOD CELL DISORDER [None]
